FAERS Safety Report 13122903 (Version 1)
Quarter: 2017Q1

REPORT INFORMATION
  Report Type: Report from Study
  Country: FR (occurrence: FR)
  Receive Date: 20170117
  Receipt Date: 20170117
  Transmission Date: 20170428
  Serious: Yes (Death, Other)
  Sender: FDA-Public Use
  Company Number: FR-PFIZER INC-2017000089

PATIENT

DRUGS (4)
  1. GLUCOSE [Concomitant]
     Active Substance: DEXTROSE
     Dosage: UNK (ARA-C IN 250 ML OF ISOTONIC GLUCOSE SOLUTION WITHOUT A PRESERVATIVE OVER THE COURSE OF 1 HOUR)
  2. AMSA [Suspect]
     Active Substance: AMSACRINE
     Indication: ACUTE LEUKAEMIA
     Dosage: UNK (90-120 MG/M2 PER DAY OVER 5 DAYS)
  3. CYTARABINE. [Suspect]
     Active Substance: CYTARABINE
     Indication: ACUTE LEUKAEMIA
     Dosage: HIGH DOSE,(3 G/M2 EVERY 12 HOURS OVER THE FIRST 2 DAYS, I.E. 4 DOSES IN TOTAL)
  4. GLUCOSE [Concomitant]
     Active Substance: DEXTROSE
     Dosage: UNK (AMSA WAS DISSOLVED IN 500-1,000 ML OF ISOTONIC GLUCOSE SOLUTION AS A PERFUSION OVER 1 HOUR)

REACTIONS (1)
  - Bone marrow failure [Fatal]
